FAERS Safety Report 4765390-9 (Version None)
Quarter: 2005Q3

REPORT INFORMATION
  Report Type: 
  Country: None (occurrence: None)
  Receive Date: 20050908
  Receipt Date: 20050908
  Transmission Date: 20060218
  Serious: Yes (Other)
  Sender: FDA-Public Use
  Company Number: None

PATIENT
  Age: 58 Year
  Sex: Male

DRUGS (3)
  1. LOVASTATIN [Suspect]
     Dosage: 40MG   DAILY   PO
     Route: 048
     Dates: start: 20040722, end: 20050830
  2. NIFEDIPINE [Concomitant]
  3. BISOPROLOL FUMARATE/HCTZ [Concomitant]

REACTIONS (4)
  - ARRHYTHMIA [None]
  - DRUG EFFECT DECREASED [None]
  - PHARMACEUTICAL PRODUCT COMPLAINT [None]
  - TACHYCARDIA [None]
